FAERS Safety Report 8022991-2 (Version None)
Quarter: 2012Q1

REPORT INFORMATION
  Report Type: 
  Country: None (occurrence: None)
  Receive Date: 20120104
  Receipt Date: 20101230
  Transmission Date: 20120608
  Serious: Yes (Hospitalization)
  Sender: FDA-Public Use
  Company Number: PHHY2010TW89317

PATIENT

DRUGS (1)
  1. NO TREATMENT RECEIVED [Suspect]

REACTIONS (5)
  - DIARRHOEA [None]
  - CONVULSION [None]
  - FEBRILE NEUTROPENIA [None]
  - GASTROOESOPHAGEAL REFLUX DISEASE [None]
  - POSTERIOR REVERSIBLE ENCEPHALOPATHY SYNDROME [None]
